FAERS Safety Report 6345300-3 (Version None)
Quarter: 2009Q3

REPORT INFORMATION
  Report Type: 
  Country: None (occurrence: None)
  Receive Date: 20090821
  Receipt Date: 20090625
  Transmission Date: 20100115
  Serious: No
  Sender: FDA-Public Use
  Company Number: 8048336

PATIENT
  Age: 38 Year
  Sex: Female
  Weight: 76.2 kg

DRUGS (5)
  1. CIMZIA [Suspect]
     Indication: CROHN'S DISEASE
     Dosage: 400 MG SC
     Route: 058
     Dates: start: 20081001
  2. MERCAPTOPURINE [Concomitant]
  3. PAXIL [Concomitant]
  4. OMEPRAZOLE [Concomitant]
  5. MELATONIN VITAMIN [Concomitant]

REACTIONS (1)
  - HEADACHE [None]
